FAERS Safety Report 16483444 (Version 1)
Quarter: 2019Q2

REPORT INFORMATION
  Report Type: Spontaneous
  Country: US (occurrence: US)
  Receive Date: 20190516
  Receipt Date: 20190516
  Transmission Date: 20190711
  Serious: Yes (Hospitalization)
  Sender: FDA-Public Use
  Company Number: None

PATIENT
  Age: 44 Year
  Sex: Female

DRUGS (1)
  1. KALYDECO [Suspect]
     Active Substance: IVACAFTOR
     Indication: CYSTIC FIBROSIS
     Dosage: ?          OTHER DOSE:1 T;?
     Route: 048
     Dates: start: 20170614

REACTIONS (1)
  - Joint arthroplasty [None]

NARRATIVE: CASE EVENT DATE: 201904
